FAERS Safety Report 19870297 (Version 3)
Quarter: 2021Q4

REPORT INFORMATION
  Report Type: Spontaneous
  Country: CN (occurrence: CN)
  Receive Date: 20210922
  Receipt Date: 20211206
  Transmission Date: 20220303
  Serious: Yes (Death, Other)
  Sender: FDA-Public Use
  Company Number: CN-PFIZER INC-202101183481

PATIENT
  Age: 78 Year
  Sex: Female
  Weight: 52 kg

DRUGS (4)
  1. TYGACIL [Suspect]
     Active Substance: TIGECYCLINE
     Indication: Peritonitis
     Dosage: 50 MG, 2X/DAY
     Route: 041
     Dates: start: 20210820
  2. MICAFUNGIN SODIUM [Suspect]
     Active Substance: MICAFUNGIN SODIUM
     Indication: Peritonitis
     Dosage: 50 MG, 1X/DAY
     Route: 041
     Dates: start: 20210820
  3. SODIUM CHLORIDE [Concomitant]
     Active Substance: SODIUM CHLORIDE
     Indication: Vehicle solution use
     Dosage: 100 ML, 2X/DAY
     Route: 041
     Dates: start: 20210820, end: 20210906
  4. SODIUM CHLORIDE [Concomitant]
     Active Substance: SODIUM CHLORIDE
     Dosage: 100 ML, 1X/DAY
     Route: 041
     Dates: start: 20210820, end: 20210906

REACTIONS (10)
  - Septic shock [Fatal]
  - Platelet count decreased [Not Recovered/Not Resolved]
  - Peritonitis [Unknown]
  - Pneumonia [Unknown]
  - Bile duct stone [Unknown]
  - Cholangitis acute [Unknown]
  - Cholelithiasis [Unknown]
  - Cholecystitis acute [Unknown]
  - End stage renal disease [Unknown]
  - Condition aggravated [Unknown]

NARRATIVE: CASE EVENT DATE: 20210820
